FAERS Safety Report 8810112 (Version 2)
Quarter: 2012Q4

REPORT INFORMATION
  Report Type: 
  Country: US (occurrence: US)
  Receive Date: 20120926
  Receipt Date: 20121010
  Transmission Date: 20130627
  Serious: Yes (Hospitalization)
  Sender: FDA-Public Use
  Company Number: US-ASTRAZENECA-2012SE73740

PATIENT
  Age: 51 Year
  Sex: Male
  Weight: 95.3 kg

DRUGS (4)
  1. NEXIUM [Suspect]
     Route: 048
  2. SEROQUEL [Suspect]
     Indication: DEPRESSION
     Route: 048
     Dates: end: 201208
  3. SEROQUEL [Suspect]
     Indication: DEPRESSION
     Dosage: GENERIC
     Route: 048
     Dates: start: 20120801
  4. UNSPECIFIED [Concomitant]

REACTIONS (13)
  - Palpitations [Unknown]
  - Feeling abnormal [Unknown]
  - Chest pain [Unknown]
  - Mobility decreased [Unknown]
  - Chest discomfort [Unknown]
  - Feeling abnormal [Unknown]
  - Depersonalisation [Unknown]
  - Hypoaesthesia [Unknown]
  - Panic attack [Unknown]
  - Asthenia [Unknown]
  - Nausea [Unknown]
  - Dizziness [Unknown]
  - Off label use [Unknown]
